FAERS Safety Report 15557868 (Version 1)
Quarter: 2018Q4

REPORT INFORMATION
  Report Type: Spontaneous
  Country: FR (occurrence: FR)
  Receive Date: 20181027
  Receipt Date: 20181027
  Transmission Date: 20190205
  Serious: Yes (Hospitalization)
  Sender: FDA-Public Use
  Company Number: FR-009507513-1810FRA007362

PATIENT
  Age: 80 Year
  Sex: Female
  Weight: 65 kg

DRUGS (6)
  1. ZOLTUM (OMEPRAZOLE) [Suspect]
     Active Substance: OMEPRAZOLE
     Dosage: DAILY DOSE: 10 MILLIGRAM(S)
     Route: 048
     Dates: end: 20060720
  2. LOVENOX [Suspect]
     Active Substance: ENOXAPARIN SODIUM
     Indication: ILL-DEFINED DISORDER
     Dosage: DAILY DOSE: .4 MILLILITRE(S)
     Route: 058
  3. PHYSIOTENS [Suspect]
     Active Substance: MOXONIDINE
     Indication: ESSENTIAL HYPERTENSION
     Dosage: DAILY DOSE: 1 DOSAGE FORM
     Route: 048
  4. TEMERIT [Suspect]
     Active Substance: NEBIVOLOL
     Indication: ESSENTIAL HYPERTENSION
     Dosage: DAILY DOSE: 5 MILLIGRAM(S)
     Route: 048
     Dates: end: 20060720
  5. EZETROL [Suspect]
     Active Substance: EZETIMIBE
     Indication: ILL-DEFINED DISORDER
     Dosage: 10 MG, QD (ALSO REPORTED AS DAILY DOSE 1 MILLIGRAM
     Route: 048
     Dates: end: 20060710
  6. BIPRETERAX (INDAPAMIDE (+) PERINDOPRIL ERBUMINE) 5 MG [Suspect]
     Active Substance: INDAPAMIDE\PERINDOPRIL
     Indication: ESSENTIAL HYPERTENSION
     Dosage: DAILY DOSE: 1 DOSAGE FORM
     Route: 048
     Dates: end: 20060710

REACTIONS (2)
  - Cryoglobulinaemia [Not Recovered/Not Resolved]
  - Hypersensitivity vasculitis [Recovering/Resolving]

NARRATIVE: CASE EVENT DATE: 20060717
